FAERS Safety Report 16935925 (Version 2)
Quarter: 2019Q4

REPORT INFORMATION
  Report Type: Spontaneous
  Country: US (occurrence: US)
  Receive Date: 20191018
  Receipt Date: 20191202
  Transmission Date: 20200122
  Serious: Yes (Other)
  Sender: FDA-Public Use
  Company Number: US-PFIZER INC-2019446326

PATIENT
  Age: 82 Year
  Sex: Male
  Weight: 86 kg

DRUGS (18)
  1. BUMETANIDE. [Concomitant]
     Active Substance: BUMETANIDE
     Dosage: 4 DF, DAILY(2 TABLETS EARLY MORNING THEN 4 HOURS LATER 2 TABLETS,4 TABLETS PER DAY IN TOTAL)
  2. REVATIO [Suspect]
     Active Substance: SILDENAFIL CITRATE
     Indication: PULMONARY HYPERTENSION
     Dosage: 20 MG, 3X/DAY
     Route: 048
     Dates: start: 20190207
  3. DUONEB [Concomitant]
     Active Substance: ALBUTEROL SULFATE\IPRATROPIUM BROMIDE
     Dosage: UNK (1 VIAL VIA NEBULIZER UP TO 3 TIMES DAILY)
  4. BREO ELLIPTA [Concomitant]
     Active Substance: FLUTICASONE FUROATE\VILANTEROL TRIFENATATE
     Dosage: UNK, 1X/DAY (200-25MCG ORAL INH (30) INHALE 1 PUFF BY MOUTH DAILY)
     Route: 048
  5. CENTRUM MULTI + PROBIOTICS [Concomitant]
     Dosage: UNK, 1X/DAY (1 TABLET NIGHT)
  6. B COMPLEX PLUS VITAMIN C [Concomitant]
     Dosage: UNK, 1X/DAY (1 TABLET AFTERNOON)
  7. COENZYME Q10 [Concomitant]
     Active Substance: UBIDECARENONE
     Dosage: 150 MG, 2X/DAY (1 TABLET (TWICE DAILY) MORNING + NIGHT W/ FOOD)
  8. ASPIRIN [ACETYLSALICYLIC ACID] [Concomitant]
     Active Substance: ASPIRIN
     Dosage: 81 MG, DAILY
  9. EZETIMIBE. [Concomitant]
     Active Substance: EZETIMIBE
     Indication: BLOOD CHOLESTEROL
     Dosage: 5 MG, 1X/DAY (1 TABLET MORNING)
  10. PROAIR HFA [Concomitant]
     Active Substance: ALBUTEROL SULFATE
     Dosage: UNK, 4X/DAY (INHALE 1-2 PUFFS 4 TIMES DAILY)
  11. VITAMIN D3 [Concomitant]
     Active Substance: CHOLECALCIFEROL
     Dosage: 100 UG, 2X/DAY
  12. REVATIO [Suspect]
     Active Substance: SILDENAFIL CITRATE
     Indication: CARDIAC FAILURE CONGESTIVE
     Dosage: 20 MG, 3X/DAY
     Dates: start: 20190208
  13. ROSUVASTATIN CALCIUM. [Concomitant]
     Active Substance: ROSUVASTATIN CALCIUM
     Indication: BLOOD CHOLESTEROL
     Dosage: 5 MG, 1X/DAY (1 TABLET BEDTIME)
  14. DILTIAZEM XR [Concomitant]
     Active Substance: DILTIAZEM
     Indication: BLOOD PRESSURE MEASUREMENT
     Dosage: 180 MG, 2X/DAY (1 CAP MORNING + 1 CAP AT NIGHT)
  15. MONTELUKAST [Concomitant]
     Active Substance: MONTELUKAST SODIUM
     Dosage: 10 MG, 1X/DAY (1 TABLET NIGHT)
  16. VYNDAQEL [Concomitant]
     Active Substance: TAFAMIDIS MEGLUMINE
     Dosage: 80 MG, 1X/DAY (4 CAPSULES ONCE A DAY MORNING)
  17. POTASSIUM CHLORIDE. [Concomitant]
     Active Substance: POTASSIUM CHLORIDE
     Dosage: 8 MEQ, 1X/DAY (1 TABLET MORNING)
  18. FISH OIL [Concomitant]
     Active Substance: FISH OIL
     Dosage: 1000 MG, 3X/DAY (1 TABLET W/ FOOD 3 TIMES PER DAY)

REACTIONS (1)
  - Amyloidosis [Not Recovered/Not Resolved]

NARRATIVE: CASE EVENT DATE: 201908
